FAERS Safety Report 6507800-2 (Version None)
Quarter: 2009Q4

REPORT INFORMATION
  Report Type: 
  Country: None (occurrence: None)
  Receive Date: 20091221
  Receipt Date: 20091210
  Transmission Date: 20100525
  Serious: Yes (Other)
  Sender: FDA-Public Use
  Company Number: US-PFIZER INC-2009309671

PATIENT
  Sex: Female
  Weight: 86.182 kg

DRUGS (2)
  1. XALATAN [Suspect]
     Indication: INTRAOCULAR PRESSURE TEST
     Dosage: 1DROP IN EACH EYE EVERY EVENING
     Route: 047
  2. TIMOLOL [Concomitant]
     Dosage: UNK
     Route: 047

REACTIONS (1)
  - CATARACT [None]
